FAERS Safety Report 4809043-7 (Version None)
Quarter: 2005Q4

REPORT INFORMATION
  Report Type: 
  Country: None (occurrence: None)
  Receive Date: 20051021
  Receipt Date: 20050203
  Transmission Date: 20060501
  Serious: Yes (Life-Threatening, Other)
  Sender: FDA-Public Use
  Company Number: GBS050216558

PATIENT
  Age: 33 Year
  Sex: Male
  Weight: 86 kg

DRUGS (3)
  1. OLANZAPINE [Suspect]
     Indication: AGITATION
     Dosage: 5 MG
     Route: 048
     Dates: start: 20040901, end: 20050201
  2. OLANZAPINE [Suspect]
     Indication: DEPRESSION
     Dosage: 5 MG
     Route: 048
     Dates: start: 20040901, end: 20050201
  3. MIRTAZAPINE [Suspect]

REACTIONS (1)
  - PULMONARY EMBOLISM [None]
